FAERS Safety Report 19454983 (Version 1)
Quarter: 2021Q2

REPORT INFORMATION
  Report Type: Spontaneous
  Country: FR (occurrence: FR)
  Receive Date: 20210623
  Receipt Date: 20210623
  Transmission Date: 20210717
  Serious: Yes (Hospitalization)
  Sender: FDA-Public Use
  Company Number: FR-BAUSCH-BL-2021-020842

PATIENT
  Age: 78 Year
  Sex: Male
  Weight: 92 kg

DRUGS (2)
  1. ACICLOVIR [Suspect]
     Active Substance: ACYCLOVIR
     Indication: OPHTHALMIC HERPES ZOSTER
     Route: 048
     Dates: start: 20210314, end: 20210314
  2. COMIRNATY [Suspect]
     Active Substance: TOZINAMERAN
     Indication: COVID-19 IMMUNISATION
     Dosage: CONCENTRATE FOR INJECTION?IN TOTAL
     Route: 030
     Dates: start: 20210311

REACTIONS (1)
  - Acute generalised exanthematous pustulosis [Recovered/Resolved]

NARRATIVE: CASE EVENT DATE: 20210314
